FAERS Safety Report 16683683 (Version 1)
Quarter: 2019Q3

REPORT INFORMATION
  Report Type: Spontaneous
  Country: US (occurrence: US)
  Receive Date: 20190808
  Receipt Date: 20190808
  Transmission Date: 20191004
  Serious: No
  Sender: FDA-Public Use
  Company Number: US-ALLERGAN-1848449US

PATIENT
  Age: 73 Year
  Sex: Male

DRUGS (5)
  1. ANDRODERM [Suspect]
     Active Substance: TESTOSTERONE
     Indication: BLOOD TESTOSTERONE DECREASED
     Dosage: UNK
     Route: 062
     Dates: start: 201807, end: 201807
  2. ASPIRIN. [Concomitant]
     Active Substance: ASPIRIN
     Indication: PRODUCT USED FOR UNKNOWN INDICATION
     Dosage: 81 MG, UNK
     Route: 048
  3. UNKNOWN PROSTRATE MED [Concomitant]
     Indication: PROSTATIC DISORDER
     Dosage: UNK, QPM
     Route: 048
  4. WATER PILL UNSPECIFIED [Concomitant]
     Indication: BLOOD PRESSURE ABNORMAL
     Dosage: UNK
     Route: 048
  5. LOSARTAN. [Concomitant]
     Active Substance: LOSARTAN
     Indication: BLOOD PRESSURE ABNORMAL
     Dosage: UNK
     Route: 048

REACTIONS (7)
  - Blood urine present [Recovered/Resolved]
  - Lack of application site rotation [Unknown]
  - Application site pain [Recovered/Resolved]
  - Application site discomfort [Recovered/Resolved]
  - Pruritus [Recovered/Resolved]
  - Application site irritation [Recovered/Resolved]
  - Skin discolouration [Recovered/Resolved]

NARRATIVE: CASE EVENT DATE: 201807
